FAERS Safety Report 25854334 (Version 3)
Quarter: 2025Q4

REPORT INFORMATION
  Report Type: Report from Study
  Country: KR (occurrence: KR)
  Receive Date: 20250927
  Receipt Date: 20251217
  Transmission Date: 20260117
  Serious: Yes (Hospitalization)
  Sender: ABBVIE
  Company Number: KR-ABBVIE-6472257

PATIENT
  Age: 47 Year
  Sex: Female
  Weight: 75 kg

DRUGS (4)
  1. RINVOQ [Suspect]
     Active Substance: UPADACITINIB
     Indication: Rheumatoid arthritis
     Dosage: DOSE FORM: MODIFIED-RELEASE TABLET
     Route: 048
     Dates: start: 20250320, end: 20250728
  2. RINVOQ [Suspect]
     Active Substance: UPADACITINIB
     Indication: Rheumatoid arthritis
     Dosage: DOSE FORM: MODIFIED-RELEASE TABLET
     Route: 048
     Dates: start: 20250806
  3. NAXEN S [Concomitant]
     Indication: Rheumatoid arthritis
     Dosage: 500/20MG
     Route: 048
     Dates: start: 20240913
  4. METHOTREXATE [Concomitant]
     Active Substance: METHOTREXATE
     Indication: Rheumatoid arthritis
     Dosage: RHEUMATREX. FOLEX?FORM STRENGTH: 2.5 MILLIGRAM
     Dates: start: 20180829

REACTIONS (1)
  - Osteoarthritis [Recovered/Resolved]

NARRATIVE: CASE EVENT DATE: 20250725
